FAERS Safety Report 8738792 (Version 5)
Quarter: 2012Q4

REPORT INFORMATION
  Report Type: Report from Study
  Country: DK (occurrence: DK)
  Receive Date: 20120823
  Receipt Date: 20120925
  Transmission Date: 20130627
  Serious: Yes (Hospitalization, Other)
  Sender: FDA-Public Use
  Company Number: DK-BRISTOL-MYERS SQUIBB COMPANY-16802563

PATIENT
  Age: 61 Year
  Sex: Male

DRUGS (9)
  1. IPILIMUMAB [Suspect]
     Indication: METASTATIC MALIGNANT MELANOMA
     Route: 042
     Dates: start: 20120518
  2. DICLOFENAC [Concomitant]
     Route: 048
     Dates: start: 2007
  3. TAVEGYL [Concomitant]
     Route: 048
     Dates: start: 20120524
  4. MILDISON [Concomitant]
     Route: 062
     Dates: start: 20120524
  5. ELTROXIN [Concomitant]
     Route: 048
     Dates: start: 20120815
  6. AMLODIPINE [Concomitant]
     Route: 048
     Dates: start: 20120722, end: 20120724
  7. TRADOLAN [Concomitant]
     Route: 048
     Dates: start: 20120722
  8. MEROPENEM [Concomitant]
     Route: 042
     Dates: start: 20120813, end: 20120816
  9. METRONIDAZOLE [Concomitant]
     Route: 042
     Dates: start: 20120813, end: 20120816

REACTIONS (4)
  - Colitis [Unknown]
  - Headache [Recovered/Resolved]
  - Blood corticotrophin decreased [Not Recovered/Not Resolved]
  - Diarrhoea [Recovered/Resolved]
